FAERS Safety Report 5173854-1 (Version None)
Quarter: 2006Q4

REPORT INFORMATION
  Report Type: 
  Country: None (occurrence: None)
  Receive Date: 20061214
  Receipt Date: 20060309
  Transmission Date: 20070319
  Serious: Yes (Other)
  Sender: FDA-Public Use
  Company Number: DE-GLAXOSMITHKLINE-D0048963A

PATIENT
  Age: 20 Year
  Sex: Female

DRUGS (3)
  1. LAMICTAL [Suspect]
     Indication: EPILEPSY
     Route: 065
     Dates: start: 20021001, end: 20061101
  2. OXCARBAZEPINE [Concomitant]
     Dosage: 600MG TWICE PER DAY
     Route: 065
  3. FOLIC ACID [Concomitant]
     Route: 065

REACTIONS (8)
  - ACNE [None]
  - APHASIA [None]
  - CERVIX DISORDER [None]
  - CONVULSION [None]
  - DISTURBANCE IN ATTENTION [None]
  - FATIGUE [None]
  - MEMORY IMPAIRMENT [None]
  - RASH [None]
